FAERS Safety Report 23290170 (Version 1)
Quarter: 2023Q4

REPORT INFORMATION
  Report Type: Spontaneous
  Country: US (occurrence: US)
  Receive Date: 20231213
  Receipt Date: 20231213
  Transmission Date: 20240110
  Serious: Yes (Other)
  Sender: FDA-Public Use
  Company Number: US-ALKEM LABORATORIES LIMITED-US-ALKEM-2023-15566

PATIENT
  Age: 7 Month

DRUGS (5)
  1. VIGABATRIN [Suspect]
     Active Substance: VIGABATRIN
     Indication: Infantile spasms
     Dosage: 220.6 MILLIGRAM/KILOGRAM, QD
     Route: 065
  2. CORTICOTROPIN [Concomitant]
     Active Substance: CORTICOTROPIN
     Indication: Infantile spasms
     Dosage: UNK
     Route: 065
  3. LEVETIRACETAM [Concomitant]
     Active Substance: LEVETIRACETAM
     Indication: Infantile spasms
     Dosage: UNK
     Route: 065
  4. PREDNISONE [Concomitant]
     Active Substance: PREDNISONE
     Indication: Infantile spasms
     Dosage: UNK
     Route: 065
  5. ZONISAMIDE [Concomitant]
     Active Substance: ZONISAMIDE
     Indication: Infantile spasms
     Dosage: UNK
     Route: 065

REACTIONS (4)
  - Bradycardia [Recovering/Resolving]
  - Encephalopathy [Recovering/Resolving]
  - Respiratory arrest [Recovering/Resolving]
  - Magnetic resonance imaging head abnormal [Recovering/Resolving]
